FAERS Safety Report 4755238-0 (Version None)
Quarter: 2005Q3

REPORT INFORMATION
  Report Type: 
  Country: None (occurrence: None)
  Receive Date: 20050829
  Receipt Date: 20041213
  Transmission Date: 20060218
  Serious: Yes (Hospitalization, Other)
  Sender: FDA-Public Use
  Company Number: US-MERCK-0412USA01613

PATIENT
  Age: 71 Year
  Sex: Female
  Weight: 80 kg

DRUGS (8)
  1. VIOXX [Suspect]
     Indication: BACK PAIN
     Route: 048
     Dates: start: 20020808, end: 20040701
  2. VIOXX [Suspect]
     Indication: FRACTURE
     Route: 048
     Dates: start: 20020808, end: 20040701
  3. LANTUS [Concomitant]
     Indication: DIABETES MELLITUS
     Route: 065
  4. TOPROL-XL [Concomitant]
     Route: 065
     Dates: start: 20021023
  5. DIOVAN [Concomitant]
     Indication: BLOOD PRESSURE
     Route: 065
     Dates: start: 20030720
  6. ULTRACET [Concomitant]
     Route: 065
  7. VIOXX [Suspect]
     Route: 048
     Dates: start: 20020808, end: 20040701
  8. VIOXX [Suspect]
     Route: 048
     Dates: start: 20020808, end: 20040701

REACTIONS (7)
  - ANKLE FRACTURE [None]
  - CEREBROVASCULAR ACCIDENT [None]
  - FALL [None]
  - JOINT SWELLING [None]
  - NERVE INJURY [None]
  - TRANSIENT ISCHAEMIC ATTACK [None]
  - TRAUMATIC BRAIN INJURY [None]
